FAERS Safety Report 4735736-6 (Version None)
Quarter: 2005Q3

REPORT INFORMATION
  Report Type: 
  Country: None (occurrence: None)
  Receive Date: 20050802
  Receipt Date: 20050719
  Transmission Date: 20060218
  Serious: Yes (Hospitalization)
  Sender: FDA-Public Use
  Company Number: BDI-007350

PATIENT
  Sex: Male

DRUGS (2)
  1. ISOVUE-200 [Suspect]
     Indication: BACK PAIN
     Dosage: IT
     Route: 038
     Dates: start: 20050707, end: 20050707
  2. ISOVUE-200 [Suspect]
     Indication: SPINAL MYELOGRAM
     Dosage: IT
     Route: 038
     Dates: start: 20050707, end: 20050707

REACTIONS (9)
  - BACK PAIN [None]
  - BODY TEMPERATURE INCREASED [None]
  - HEADACHE [None]
  - LETHARGY [None]
  - MENINGITIS ASEPTIC [None]
  - NAUSEA [None]
  - PHOTOPHOBIA [None]
  - SOMNOLENCE [None]
  - VOMITING [None]
